FAERS Safety Report 25471252 (Version 1)
Quarter: 2025Q2

REPORT INFORMATION
  Report Type: Spontaneous
  Country: GB (occurrence: GB)
  Receive Date: 20250624
  Receipt Date: 20250624
  Transmission Date: 20250716
  Serious: Yes (Other)
  Sender: TEVA
  Company Number: GB-MHRA-TPP5386645C5318636YC1749800421108

PATIENT
  Age: 65 Year
  Sex: Female
  Weight: 70 kg

DRUGS (13)
  1. TRIMETHOPRIM [Suspect]
     Active Substance: TRIMETHOPRIM
     Indication: Ill-defined disorder
     Dosage: TAKE ONE TWICE DAILY. DO NOT TAKE IF YOU ALSO T..., 400 MG DAILY , DURATION : 4 DAYS
     Route: 065
     Dates: start: 20250514, end: 20250517
  2. INDAPAMIDE [Concomitant]
     Active Substance: INDAPAMIDE
     Indication: Ill-defined disorder
     Dosage: TAKE ONE EACH MORNING, 1 DOSAGE FORMS DAILY
     Dates: start: 20250313
  3. BRINZOLAMIDE [Concomitant]
     Active Substance: BRINZOLAMIDE
     Indication: Ill-defined disorder
     Dosage: ONE DROP TWICE DAILY TO BOTH EYES, PATIENT ROA : OPHTHALMIC, 4 DROPS DAILY
     Dates: start: 20250313
  4. CALCIUM\CHOLECALCIFEROL [Concomitant]
     Active Substance: CALCIUM\CHOLECALCIFEROL
     Indication: Ill-defined disorder
     Dosage: 1 TWICE DAILY, 2 DOSAGE FORMS DAILY
     Dates: start: 20250313
  5. BECLOMETHASONE\FORMOTEROL [Concomitant]
     Active Substance: BECLOMETHASONE\FORMOTEROL
     Indication: Ill-defined disorder
     Dosage: TWO PUFFS TWICE DAILY, 4 DOSAGE FORMS DAILY
     Dates: start: 20250313
  6. NITROFURANTOIN [Concomitant]
     Active Substance: NITROFURANTOIN
     Indication: Ill-defined disorder
     Dosage: TAKE ONE TWICE DAILY, 2 DOSAGE FORMS DAILY
     Dates: start: 20250507, end: 20250514
  7. ALBUTEROL [Concomitant]
     Active Substance: ALBUTEROL
     Indication: Ill-defined disorder
     Dosage: 2 PUFFS FOUR TIMES DAILY PRN, 8 DOSAGE FORMS DAILY
     Dates: start: 20250313
  8. LEVOTHYROXINE [Concomitant]
     Active Substance: LEVOTHYROXINE
     Indication: Ill-defined disorder
     Dosage: ONE TO BE TAKEN DAILY, 1 DOSAGE FORMS DAILY
     Dates: start: 20250313
  9. CELECOXIB [Concomitant]
     Active Substance: CELECOXIB
     Indication: Ill-defined disorder
     Dosage: TAKE TWO DAILY, 2 DOSAGE FORMS DAILY
     Dates: start: 20250404
  10. NIZATIDINE [Concomitant]
     Active Substance: NIZATIDINE
     Indication: Ill-defined disorder
     Dosage: TAKE ONE TWICE DAILY, 2 DOSAGE FORMS DAILY
     Dates: start: 20250313
  11. FELODIPINE [Concomitant]
     Active Substance: FELODIPINE
     Indication: Ill-defined disorder
     Dosage: TAKE ONE TABLET TWICE DAILY, 2 DOSAGE FORMS DAILY
     Dates: start: 20250313
  12. ALGINATE [Concomitant]
     Indication: Ill-defined disorder
     Dates: start: 20250313
  13. LOPERAMIDE [Concomitant]
     Active Substance: LOPERAMIDE
     Indication: Ill-defined disorder
     Dosage: TWO A DAY, 2 DOSAGE FORMS DAILY
     Dates: start: 20250313

REACTIONS (3)
  - Visual impairment [Recovered/Resolved]
  - Epistaxis [Unknown]
  - Headache [Unknown]
